FAERS Safety Report 12876670 (Version 1)
Quarter: 2016Q4

REPORT INFORMATION
  Report Type: Other
  Country: ES (occurrence: ES)
  Receive Date: 20161024
  Receipt Date: 20161024
  Transmission Date: 20170207
  Serious: Yes (Other)
  Sender: FDA-Public Use
  Company Number: ES-KOWA-16EU001880

PATIENT
  Age: 62 Year
  Sex: Female

DRUGS (1)
  1. ALIPZA [Suspect]
     Active Substance: PITAVASTATIN
     Indication: PRODUCT USED FOR UNKNOWN INDICATION
     Dosage: 4 MG, QD
     Route: 048
     Dates: start: 20160407, end: 20160524

REACTIONS (2)
  - Disorientation [Unknown]
  - Chest pain [Unknown]

NARRATIVE: CASE EVENT DATE: 201604
